FAERS Safety Report 9480694 (Version 1)
Quarter: 2013Q3

REPORT INFORMATION
  Report Type: Spontaneous
  Country: US (occurrence: US)
  Receive Date: 20130828
  Receipt Date: 20130828
  Transmission Date: 20140515
  Serious: Yes (Death, Hospitalization, Other)
  Sender: FDA-Public Use
  Company Number: US-AMGEN-KDL109598

PATIENT
  Age: 69 Year
  Sex: Female

DRUGS (3)
  1. ENBREL [Suspect]
     Indication: RHEUMATOID ARTHRITIS
     Dosage: UNK UNK, 2 TIMES/WK
     Route: 065
     Dates: end: 20041128
  2. PREDNISONE [Concomitant]
     Dosage: UNK UNK, UNK
  3. OXYCONTIN [Concomitant]
     Dosage: UNK UNK, UNK

REACTIONS (6)
  - Death [Fatal]
  - Diabetes mellitus [Unknown]
  - Diarrhoea [Unknown]
  - Pyrexia [Unknown]
  - Rheumatoid arthritis [Unknown]
  - Condition aggravated [Unknown]
